FAERS Safety Report 18469968 (Version 2)
Quarter: 2020Q4

REPORT INFORMATION
  Report Type: Report from Study
  Country: GB (occurrence: GB)
  Receive Date: 20201106
  Receipt Date: 20201216
  Transmission Date: 20210114
  Serious: Yes (Other)
  Sender: FDA-Public Use
  Company Number: GB-SAMSUNG BIOEPIS-SB-2020-33504

PATIENT
  Age: 51 Year
  Sex: Male
  Weight: 120.6 kg

DRUGS (1)
  1. IMRALDI [Suspect]
     Active Substance: ADALIMUMAB
     Indication: ANKYLOSING SPONDYLITIS
     Route: 058

REACTIONS (10)
  - Rash macular [Unknown]
  - Ill-defined disorder [Unknown]
  - Fatigue [Unknown]
  - Loss of personal independence in daily activities [Unknown]
  - COVID-19 [Unknown]
  - Pruritus [Unknown]
  - Middle insomnia [Unknown]
  - Decreased activity [Unknown]
  - Stress at work [Unknown]
  - Therapeutic product effect incomplete [Unknown]
